FAERS Safety Report 6264975-0 (Version None)
Quarter: 2009Q3

REPORT INFORMATION
  Report Type: 
  Country: None (occurrence: None)
  Receive Date: 20090709
  Receipt Date: 20090709
  Transmission Date: 20100115
  Serious: Yes (Other)
  Sender: FDA-Public Use
  Company Number: None

PATIENT
  Sex: Female
  Weight: 162 kg

DRUGS (2)
  1. ACTONEL [Suspect]
     Indication: OSTEOPOROSIS
     Dosage: 1 PILL EVERY WEEK
     Dates: start: 20070101
  2. ACTONEL [Suspect]
     Indication: OSTEOPOROSIS
     Dosage: 1 PILL EVERY WEEK
     Dates: start: 20090501

REACTIONS (3)
  - ABASIA [None]
  - BONE PAIN [None]
  - PAIN IN EXTREMITY [None]
